FAERS Safety Report 17552328 (Version 2)
Quarter: 2020Q2

REPORT INFORMATION
  Report Type: Spontaneous
  Country: US (occurrence: US)
  Receive Date: 20200317
  Receipt Date: 20200402
  Transmission Date: 20200713
  Serious: No
  Sender: FDA-Public Use
  Company Number: US-MATRIXX INITIATIVES, INC.-2081709

PATIENT
  Age: 37 Year
  Sex: Male
  Weight: 104.55 kg

DRUGS (1)
  1. ZICAM COLD REMEDY RAPIDMELTS [Suspect]
     Active Substance: HOMEOPATHICS\ZINC ACETATE ANHYDROUS\ZINC GLUCONATE
     Indication: NASOPHARYNGITIS
     Route: 048
     Dates: start: 20200306, end: 20200308

REACTIONS (3)
  - Anosmia [Recovering/Resolving]
  - Drug ineffective [None]
  - Ageusia [Recovering/Resolving]
